FAERS Safety Report 6423363-4 (Version None)
Quarter: 2009Q4

REPORT INFORMATION
  Report Type: 
  Country: None (occurrence: None)
  Receive Date: 20091102
  Receipt Date: 20091027
  Transmission Date: 20100525
  Serious: Yes (Death)
  Sender: FDA-Public Use
  Company Number: A0661465A

PATIENT
  Sex: Male

DRUGS (1)
  1. AVANDIA [Suspect]
     Route: 048
     Dates: start: 20070703, end: 20071003

REACTIONS (4)
  - ANXIETY [None]
  - DEATH [None]
  - MYOCARDIAL INFARCTION [None]
  - PAIN [None]
